FAERS Safety Report 18785631 (Version 1)
Quarter: 2021Q1

REPORT INFORMATION
  Report Type: Spontaneous
  Country: PL (occurrence: PL)
  Receive Date: 20210125
  Receipt Date: 20210125
  Transmission Date: 20210419
  Serious: Yes (Other)
  Sender: FDA-Public Use
  Company Number: PL-ACCORD-215486

PATIENT
  Age: 18 Year
  Sex: Female

DRUGS (6)
  1. PREGABALIN. [Suspect]
     Active Substance: PREGABALIN
     Indication: BORDERLINE PERSONALITY DISORDER
     Route: 048
  2. TRAZODONE [Suspect]
     Active Substance: TRAZODONE HYDROCHLORIDE
     Indication: BORDERLINE PERSONALITY DISORDER
     Route: 065
  3. VENLAFAXINE/VENLAFAXINE HYDROCHLORIDE [Suspect]
     Active Substance: VENLAFAXINE HYDROCHLORIDE
     Indication: BORDERLINE PERSONALITY DISORDER
     Route: 065
  4. CLORAZEPATE DIPOTASSIUM/CLORAZEPATE MONOPOTASSIUM/CLORAZEPIC ACID [Suspect]
     Active Substance: CLORAZEPIC ACID
     Indication: BORDERLINE PERSONALITY DISORDER
     Route: 065
  5. QUETIAPINE. [Suspect]
     Active Substance: QUETIAPINE
     Indication: BORDERLINE PERSONALITY DISORDER
     Route: 065
  6. PERAZINE/PERAZINE DIMALEATE/PERAZINE DIMALONATE [Suspect]
     Active Substance: PERAZINE
     Indication: BORDERLINE PERSONALITY DISORDER
     Route: 065

REACTIONS (7)
  - Dizziness [Unknown]
  - Off label use [Unknown]
  - Altered state of consciousness [Unknown]
  - Anxiety [Unknown]
  - Withdrawal syndrome [Unknown]
  - Confusional state [Unknown]
  - Irritability [Unknown]
